FAERS Safety Report 18506109 (Version 1)
Quarter: 2020Q4

REPORT INFORMATION
  Report Type: Spontaneous
  Country: US (occurrence: US)
  Receive Date: 20201116
  Receipt Date: 20201116
  Transmission Date: 20210114
  Serious: No
  Sender: FDA-Public Use
  Company Number: US-MYLANLABS-2020M1093754

PATIENT
  Sex: Female

DRUGS (1)
  1. ESTRADIOL VAGINAL CREAM USP [Suspect]
     Active Substance: ESTRADIOL
     Indication: ATROPHIC VULVOVAGINITIS
     Dosage: UNK UNK, QD (ONCE / DAY)
     Route: 067

REACTIONS (3)
  - Therapeutic product effect decreased [Recovering/Resolving]
  - Wrong technique in product usage process [Not Recovered/Not Resolved]
  - Device issue [Recovering/Resolving]
